FAERS Safety Report 20650675 (Version 13)
Quarter: 2024Q1

REPORT INFORMATION
  Report Type: Spontaneous
  Country: US (occurrence: US)
  Receive Date: 20220329
  Receipt Date: 20240313
  Transmission Date: 20240409
  Serious: Yes (Other)
  Sender: FDA-Public Use
  Company Number: US-PFIZER INC-202200463363

PATIENT
  Age: 54 Year
  Sex: Female
  Weight: 85.3 kg

DRUGS (2)
  1. ESTRING [Suspect]
     Active Substance: ESTRADIOL
     Indication: Urinary tract infection
     Dosage: 2 MG, EVERY 3 MONTHS
     Route: 067
     Dates: start: 20201216
  2. ESTRING [Suspect]
     Active Substance: ESTRADIOL
     Indication: Genitourinary syndrome of menopause
     Dosage: QUANTITY FOR 90 DAYS: 1 RING

REACTIONS (6)
  - Vulvovaginal mycotic infection [Unknown]
  - Hypothyroidism [Unknown]
  - Autoimmune thyroiditis [Unknown]
  - Product prescribing error [Unknown]
  - Dehydroepiandrosterone increased [Unknown]
  - Frustration tolerance decreased [Unknown]
